FAERS Safety Report 9906273 (Version 2)
Quarter: 2014Q1

REPORT INFORMATION
  Report Type: Spontaneous
  Country: US (occurrence: US)
  Receive Date: 20140218
  Receipt Date: 20140218
  Transmission Date: 20141002
  Serious: No
  Sender: FDA-Public Use
  Company Number: US-GILEAD-2011-0048510

PATIENT
  Age: 83 Year
  Sex: Female
  Weight: 78.5 kg

DRUGS (8)
  1. LETAIRIS [Suspect]
     Indication: PULMONARY HYPERTENSION
     Dosage: 5 MG, UNK
     Route: 048
     Dates: start: 20111109
  2. ASPIRIN [Concomitant]
  3. LEVOTHYROXINE SODIUM [Concomitant]
  4. VITAMIN B-12 [Concomitant]
  5. MOVE FREE [Concomitant]
  6. ATENOLOL [Concomitant]
  7. SPIRONOLACTONE [Concomitant]
  8. FUROSEMIDE [Concomitant]

REACTIONS (5)
  - Muscle spasms [Unknown]
  - Hypotension [Unknown]
  - Retching [Unknown]
  - Abdominal discomfort [Unknown]
  - Swelling [Unknown]
